FAERS Safety Report 4740164-3 (Version None)
Quarter: 2005Q3

REPORT INFORMATION
  Report Type: 
  Country: None (occurrence: None)
  Receive Date: 20050810
  Receipt Date: 20050208
  Transmission Date: 20060218
  Serious: No
  Sender: FDA-Public Use
  Company Number: US-GLAXOSMITHKLINE-A0544548A

PATIENT
  Age: 47 Year
  Sex: Female

DRUGS (4)
  1. PAXIL [Suspect]
     Dosage: 20MG PER DAY
     Route: 048
  2. BIRTH CONTROL [Concomitant]
  3. LIPITOR [Concomitant]
  4. TYLENOL (CAPLET) [Concomitant]

REACTIONS (9)
  - ANXIETY [None]
  - CRYING [None]
  - DIZZINESS [None]
  - DRUG WITHDRAWAL SYNDROME [None]
  - INSOMNIA [None]
  - MUSCLE SPASMS [None]
  - PARAESTHESIA [None]
  - SENSORY DISTURBANCE [None]
  - TINNITUS [None]
